FAERS Safety Report 21043557 (Version 1)
Quarter: 2022Q3

REPORT INFORMATION
  Report Type: Spontaneous
  Country: US (occurrence: None)
  Receive Date: 20220701
  Receipt Date: 20220701
  Transmission Date: 20221027
  Serious: Yes (Life-Threatening, Hospitalization)
  Sender: FDA-Public Use
  Company Number: None

PATIENT
  Age: 57 Year
  Sex: Male
  Weight: 101 kg

DRUGS (1)
  1. ACTEMRA [Suspect]
     Active Substance: TOCILIZUMAB
     Indication: COVID-19
     Dosage: FREQUENCY : ONCE;?
     Route: 040
     Dates: start: 20220205, end: 20220205

REACTIONS (6)
  - Hypoxia [None]
  - Dyspnoea [None]
  - Productive cough [None]
  - White blood cell count increased [None]
  - Procalcitonin increased [None]
  - Condition aggravated [None]

NARRATIVE: CASE EVENT DATE: 20220213
